FAERS Safety Report 17362099 (Version 2)
Quarter: 2020Q1

REPORT INFORMATION
  Report Type: Spontaneous
  Country: IL (occurrence: IL)
  Receive Date: 20200203
  Receipt Date: 20200323
  Transmission Date: 20200409
  Serious: Yes (Other)
  Sender: FDA-Public Use
  Company Number: IL-NOVOPROD-709848

PATIENT
  Age: 87 Year
  Sex: Female
  Weight: 62 kg

DRUGS (1)
  1. TREGLUDEC FLEXTOUCH [Suspect]
     Active Substance: INSULIN DEGLUDEC
     Indication: TYPE 2 DIABETES MELLITUS
     Dosage: 9 IU, QD
     Route: 058

REACTIONS (1)
  - Dementia Alzheimer^s type [Not Recovered/Not Resolved]
